FAERS Safety Report 21053881 (Version 1)
Quarter: 2022Q3

REPORT INFORMATION
  Report Type: Spontaneous
  Country: US (occurrence: None)
  Receive Date: 20220707
  Receipt Date: 20220707
  Transmission Date: 20221027
  Serious: Yes (unspecified)
  Sender: FDA-Public Use
  Company Number: None

PATIENT
  Age: 68 Year
  Sex: Male
  Weight: 84.6 kg

DRUGS (2)
  1. FUNGICURE ANTI-FUNGAL LIQUID [Suspect]
     Active Substance: TOLNAFTATE
     Indication: Tinea cruris
     Dosage: OTHER STRENGTH : 1;?OTHER QUANTITY : 2 SKIN APPLICATION;?FREQUENCY : TWICE A DAY;?
     Route: 061
     Dates: start: 20220702, end: 20220704
  2. PREDNISONE [Concomitant]
     Active Substance: PREDNISONE

REACTIONS (4)
  - Condition aggravated [None]
  - Pain [None]
  - Urticaria [None]
  - Dyschezia [None]

NARRATIVE: CASE EVENT DATE: 20220702
